FAERS Safety Report 22638088 (Version 1)
Quarter: 2023Q2

REPORT INFORMATION
  Report Type: Report from Study
  Country: KR (occurrence: None)
  Receive Date: 20230626
  Receipt Date: 20230626
  Transmission Date: 20230722
  Serious: Yes (Hospitalization)
  Sender: FDA-Public Use
  Company Number: KR-Eisai Medical Research-EC-2023-143270

PATIENT
  Age: 58 Year
  Sex: Female
  Weight: 53.4 kg

DRUGS (4)
  1. LENVIMA [Suspect]
     Active Substance: LENVATINIB
     Indication: Endometrial cancer recurrent
     Route: 048
     Dates: start: 20230418, end: 20230621
  2. PEMBROLIZUMAB [Suspect]
     Active Substance: PEMBROLIZUMAB
     Indication: Endometrial cancer recurrent
     Dosage: FREQUENCY UNKNOWN
     Route: 042
     Dates: start: 20230418
  3. SYNTHROID [Concomitant]
     Active Substance: LEVOTHYROXINE SODIUM
     Indication: Hypothyroidism
     Dates: start: 20221025
  4. NORVASC [Concomitant]
     Active Substance: AMLODIPINE BESYLATE
     Indication: Hypertension
     Dates: start: 20230426

REACTIONS (1)
  - Urine protein/creatinine ratio increased [Recovering/Resolving]

NARRATIVE: CASE EVENT DATE: 20230620
